FAERS Safety Report 6180512-3 (Version None)
Quarter: 2009Q2

REPORT INFORMATION
  Report Type: 
  Country: None (occurrence: None)
  Receive Date: 20090504
  Receipt Date: 20090417
  Transmission Date: 20091009
  Serious: Yes (Death)
  Sender: FDA-Public Use
  Company Number: 013

PATIENT
  Age: 48 Year
  Sex: Male
  Weight: 153.3158 kg

DRUGS (6)
  1. FAZACLO ODT [Suspect]
     Indication: SCHIZOAFFECTIVE DISORDER
     Dosage: 200 MG QHS PO
     Route: 048
     Dates: start: 20050610, end: 20050619
  2. HALDOL [Concomitant]
  3. LAMISIL [Concomitant]
  4. COGENTIN [Concomitant]
  5. SEROQUEL [Concomitant]
  6. RISPERDAL [Concomitant]

REACTIONS (13)
  - AGITATION [None]
  - ARRHYTHMIA [None]
  - CARDIOMEGALY [None]
  - GRANULOMA [None]
  - HYPERTENSIVE HEART DISEASE [None]
  - LEFT VENTRICULAR HYPERTROPHY [None]
  - LUNG DISORDER [None]
  - PARANOIA [None]
  - PULMONARY CONGESTION [None]
  - PULMONARY OEDEMA [None]
  - SPLEEN DISORDER [None]
  - TRACHEAL DISORDER [None]
  - VISCERAL CONGESTION [None]
